FAERS Safety Report 22210788 (Version 1)
Quarter: 2023Q2

REPORT INFORMATION
  Report Type: Spontaneous
  Country: TR (occurrence: TR)
  Receive Date: 20230414
  Receipt Date: 20230414
  Transmission Date: 20230722
  Serious: Yes (Life-Threatening)
  Sender: FDA-Public Use
  Company Number: TR-002147023-NVSC2023TR084532

PATIENT
  Age: 48 Year
  Sex: Female

DRUGS (1)
  1. XOLAIR [Suspect]
     Active Substance: OMALIZUMAB
     Indication: Product used for unknown indication
     Route: 065
     Dates: start: 20230320

REACTIONS (3)
  - Myocardial infarction [Unknown]
  - Coronary artery embolism [Unknown]
  - Coronary artery occlusion [Recovered/Resolved]

NARRATIVE: CASE EVENT DATE: 20230410
